FAERS Safety Report 25449132 (Version 1)
Quarter: 2025Q2

REPORT INFORMATION
  Report Type: Report from Study
  Country: US (occurrence: US)
  Receive Date: 20250618
  Receipt Date: 20250618
  Transmission Date: 20250717
  Serious: No
  Sender: BIOVITRUM
  Company Number: US-BIOVITRUM-2025-US-008384

PATIENT
  Age: 3 Year
  Sex: Male

DRUGS (2)
  1. ORFADIN [Suspect]
     Active Substance: NITISINONE
     Indication: Tyrosinaemia
     Route: 048
     Dates: start: 20230808, end: 20250401
  2. ORFADIN [Suspect]
     Active Substance: NITISINONE
     Route: 048
     Dates: start: 20250401

REACTIONS (2)
  - Amino acid level increased [Recovered/Resolved]
  - Succinylacetone increased [Recovered/Resolved]

NARRATIVE: CASE EVENT DATE: 20250104
